FAERS Safety Report 23553010 (Version 1)
Quarter: 2024Q1

REPORT INFORMATION
  Report Type: Spontaneous
  Country: US (occurrence: None)
  Receive Date: 20240221
  Receipt Date: 20240221
  Transmission Date: 20240409
  Serious: Yes (Life-Threatening, Disabling)
  Sender: FDA-Public Use
  Company Number: None

PATIENT
  Age: 41 Year
  Sex: Male
  Weight: 77.4 kg

DRUGS (4)
  1. ZYPREXA [Suspect]
     Active Substance: OLANZAPINE
     Indication: Schizoaffective disorder bipolar type
  2. INVEGA [Suspect]
     Active Substance: PALIPERIDONE
  3. vISTERIL [Concomitant]
  4. VITAMIN B6 [Concomitant]
     Active Substance: PYRIDOXINE HYDROCHLORIDE

REACTIONS (2)
  - Dissociation [None]
  - Therapy cessation [None]

NARRATIVE: CASE EVENT DATE: 20190201
